FAERS Safety Report 15221561 (Version 1)
Quarter: 2018Q4

REPORT INFORMATION
  Report Type: Spontaneous
  Country: FR (occurrence: FR)
  Receive Date: 20180731
  Receipt Date: 20180731
  Transmission Date: 20190204
  Serious: Yes (Hospitalization, Other)
  Sender: FDA-Public Use
  Company Number: FR-PFIZER INC-2018300850

PATIENT
  Age: 53 Year
  Sex: Male

DRUGS (12)
  1. KARDEGIC [Suspect]
     Active Substance: ASPIRIN DL-LYSINE
     Indication: PROPHYLAXIS
     Dosage: 1 DF, ONCE A DAY
     Route: 048
     Dates: start: 201703, end: 20180621
  2. DULOXETINE MYLAN [Suspect]
     Active Substance: DULOXETINE
     Indication: DEPRESSION
     Dosage: 1 DF, ONCE A DAY
     Route: 048
     Dates: start: 201804, end: 20180621
  3. LANSOPRAZOLE. [Concomitant]
     Active Substance: LANSOPRAZOLE
     Dosage: UNK
  4. VITAMIN B12 [Concomitant]
     Active Substance: CYANOCOBALAMIN
     Dosage: UNK
  5. ALPRAZOLAM. [Suspect]
     Active Substance: ALPRAZOLAM
     Indication: DEPRESSION
     Dosage: 1 DF, ONCE A DAY
     Route: 048
     Dates: start: 201803, end: 20180621
  6. IRBESARTAN ACCORD [Suspect]
     Active Substance: IRBESARTAN
     Indication: HYPERTENSION
     Dosage: 1 DF, ONCE A DAY
     Route: 048
     Dates: start: 201703, end: 20180621
  7. ATORVASTATINE ALMUS [Suspect]
     Active Substance: ATORVASTATIN CALCIUM
     Indication: PROPHYLAXIS
     Dosage: 1 DF, ONCE A DAY
     Route: 048
     Dates: start: 201703, end: 20180621
  8. TECFIDERA [Concomitant]
     Active Substance: DIMETHYL FUMARATE
     Dosage: UNK
  9. TRAMADOL ACTAVIS [Suspect]
     Active Substance: TRAMADOL
     Indication: PAIN
     Dosage: 1 DF, 1X/DAY
     Route: 048
     Dates: start: 201711
  10. DOLIPRANE [Concomitant]
     Active Substance: ACETAMINOPHEN
     Dosage: UNK
  11. BISOPROLOL QUIVER 5MG [Suspect]
     Active Substance: BISOPROLOL
     Indication: HYPERTENSION
     Dosage: 1 DF, ONCE A DAY
     Route: 048
     Dates: start: 201703, end: 20180621
  12. CLOPIDOGREL ALMUS /01220701/ [Suspect]
     Active Substance: CLOPIDOGREL BISULFATE
     Indication: PROPHYLAXIS
     Dosage: 1 DF, ONCE A DAY
     Route: 048
     Dates: start: 201703, end: 20180621

REACTIONS (4)
  - Skull fracture [Recovering/Resolving]
  - Ear haemorrhage [Recovered/Resolved]
  - Fall [Recovered/Resolved]
  - Haemorrhage intracranial [Not Recovered/Not Resolved]

NARRATIVE: CASE EVENT DATE: 20180621
